FAERS Safety Report 10158125 (Version 1)
Quarter: 2014Q2

REPORT INFORMATION
  Report Type: Spontaneous
  Country: US (occurrence: US)
  Receive Date: 20140507
  Receipt Date: 20140507
  Transmission Date: 20141212
  Serious: Yes (Other)
  Sender: FDA-Public Use
  Company Number: US-WATSON-2014-09314

PATIENT
  Age: 45 Year
  Sex: Female

DRUGS (3)
  1. NORTRIPTYLINE HYDROCHLORIDE (WATSON LABORATORIES) [Suspect]
     Indication: MIGRAINE PROPHYLAXIS
     Dosage: 75 MG, UNKNOWN
     Route: 065
  2. NORTRIPTYLINE HYDROCHLORIDE (WATSON LABORATORIES) [Suspect]
     Indication: DEPRESSION
  3. LEVETIRACETAM [Concomitant]
     Indication: CONVULSION
     Dosage: UNKNOWN
     Route: 065

REACTIONS (1)
  - Electrocardiogram QT prolonged [Recovered/Resolved]
